FAERS Safety Report 22537494 (Version 1)
Quarter: 2023Q2

REPORT INFORMATION
  Report Type: Spontaneous
  Country: US (occurrence: US)
  Receive Date: 20230608
  Receipt Date: 20230608
  Transmission Date: 20230721
  Serious: Yes (Other)
  Sender: FDA-Public Use
  Company Number: US-MYLANLABS-2023M1060692

PATIENT
  Age: 67 Year
  Sex: Male

DRUGS (4)
  1. PANTOPRAZOLE [Suspect]
     Active Substance: PANTOPRAZOLE
     Indication: Gastrooesophageal reflux disease
     Dosage: UNK, QD
     Route: 065
  2. PANTOPRAZOLE [Suspect]
     Active Substance: PANTOPRAZOLE
     Indication: Hiccups
  3. CHLORPROMAZINE [Suspect]
     Active Substance: CHLORPROMAZINE
     Indication: Gastrooesophageal reflux disease
     Dosage: UNK
     Route: 065
  4. CHLORPROMAZINE [Suspect]
     Active Substance: CHLORPROMAZINE
     Indication: Hiccups

REACTIONS (1)
  - Drug ineffective [Unknown]
